FAERS Safety Report 10570793 (Version 1)
Quarter: 2014Q4

REPORT INFORMATION
  Report Type: Spontaneous
  Country: KR (occurrence: KR)
  Receive Date: 20141107
  Receipt Date: 20141107
  Transmission Date: 20150529
  Serious: Yes (Hospitalization)
  Sender: FDA-Public Use
  Company Number: KR-ASTRAZENECA-2014SE82710

PATIENT
  Age: 33 Year
  Sex: Male
  Weight: 65 kg

DRUGS (2)
  1. FENTANYL. [Suspect]
     Active Substance: FENTANYL
     Indication: ANAESTHESIA
     Route: 037
  2. BUPIVACAINE HYPERBARIC [Suspect]
     Active Substance: BUPIVACAINE
     Indication: ANAESTHESIA
     Route: 037

REACTIONS (1)
  - Spinal subarachnoid haemorrhage [Recovered/Resolved]
